FAERS Safety Report 9511352 (Version 1)
Quarter: 2013Q3

REPORT INFORMATION
  Report Type: Spontaneous
  Country: US (occurrence: None)
  Receive Date: 20130909
  Receipt Date: 20130909
  Transmission Date: 20140515
  Serious: Yes (Hospitalization)
  Sender: FDA-Public Use
  Company Number: None

PATIENT
  Age: 61 Year
  Sex: Female
  Weight: 73.94 kg

DRUGS (7)
  1. XARELTO 20 MG JANSSEN [Suspect]
     Indication: DEEP VEIN THROMBOSIS
  2. LOSARTAN [Concomitant]
  3. FLUTICASONE [Concomitant]
  4. ZRTEC [Concomitant]
  5. CALCIUM [Concomitant]
  6. VITAMIN D [Concomitant]
  7. FLINTSTONE VITAMIN [Concomitant]

REACTIONS (1)
  - Haemarthrosis [None]
